FAERS Safety Report 5786667-4 (Version None)
Quarter: 2008Q2

REPORT INFORMATION
  Report Type: 
  Country: None (occurrence: None)
  Receive Date: 20080618
  Receipt Date: 20080605
  Transmission Date: 20081010
  Serious: Yes (Hospitalization)
  Sender: FDA-Public Use
  Company Number: E2090-00469-SPO-JP

PATIENT
  Age: 6 Year
  Sex: Male
  Weight: 20.6 kg

DRUGS (8)
  1. ZONISAMIDE [Suspect]
     Indication: EPILEPSY
     Dosage: 0.201 GM, 3 IN 1 D, ORAL; DOSE WAS GRADUALLY INCREASED, ORAL; 0.2 GM, 1 IN 1 D, ORAL
     Route: 048
     Dates: start: 20080430, end: 20080101
  2. ZONISAMIDE [Suspect]
     Indication: EPILEPSY
     Dosage: 0.201 GM, 3 IN 1 D, ORAL; DOSE WAS GRADUALLY INCREASED, ORAL; 0.2 GM, 1 IN 1 D, ORAL
     Route: 048
     Dates: start: 20080518, end: 20080520
  3. ZONISAMIDE [Suspect]
     Indication: EPILEPSY
     Dosage: 0.201 GM, 3 IN 1 D, ORAL; DOSE WAS GRADUALLY INCREASED, ORAL; 0.2 GM, 1 IN 1 D, ORAL
     Route: 048
     Dates: start: 20080101, end: 20080615
  4. TEGRETOL [Suspect]
     Indication: EPILEPSY
     Dosage: 200 MG, ORAL
     Route: 048
     Dates: start: 20071221, end: 20080515
  5. ASVERIN (TIPEPIDINE HIBENZATE) [Suspect]
     Indication: UPPER RESPIRATORY TRACT INFLAMMATION
     Dosage: 39MG, ORAL
     Dates: start: 20080514, end: 20080515
  6. MUCODYNE (CARBOCISTEINE) [Concomitant]
     Indication: UPPER RESPIRATORY TRACT INFLAMMATION
     Dosage: 600 MG, ORAL
     Route: 048
     Dates: start: 20080514, end: 20080515
  7. CEFZON (CEFDINIR) [Concomitant]
     Indication: UPPER RESPIRATORY TRACT INFLAMMATION
     Dosage: ORAL
     Route: 048
     Dates: start: 20080514, end: 20080515
  8. CALONAL (PARACETAMOL) [Suspect]
     Indication: UPPER RESPIRATORY TRACT INFLAMMATION
     Dates: start: 20080514, end: 20080515

REACTIONS (2)
  - STEVENS-JOHNSON SYNDROME [None]
  - UPPER RESPIRATORY TRACT INFLAMMATION [None]
